FAERS Safety Report 20182931 (Version 1)
Quarter: 2021Q4

REPORT INFORMATION
  Report Type: Spontaneous
  Country: US (occurrence: US)
  Receive Date: 20211214
  Receipt Date: 20211214
  Transmission Date: 20220303
  Serious: No
  Sender: FDA-Public Use
  Company Number: US-BAYER-2021A267510

PATIENT
  Age: 56 Year
  Sex: Male

DRUGS (3)
  1. KERENDIA [Suspect]
     Active Substance: FINERENONE
     Indication: Chronic kidney disease
     Dosage: 10 MG
     Route: 048
     Dates: start: 202111
  2. PROCARDIA [Concomitant]
     Active Substance: NIFEDIPINE
     Dosage: 60 MG
     Dates: start: 202111
  3. ATORVASTATIN [Concomitant]
     Active Substance: ATORVASTATIN
     Dosage: 20 MG

REACTIONS (2)
  - Myalgia [None]
  - Pain [None]
